FAERS Safety Report 4541534-9 (Version None)
Quarter: 2004Q4

REPORT INFORMATION
  Report Type: 
  Country: None (occurrence: None)
  Receive Date: 20041227
  Receipt Date: 20041220
  Transmission Date: 20050328
  Serious: Yes (Hospitalization)
  Sender: FDA-Public Use
  Company Number: 2004109607

PATIENT
  Age: 79 Year
  Sex: Male

DRUGS (4)
  1. LIPITOR [Suspect]
     Indication: HYPERLIPIDAEMIA
     Dosage: 5 MG, ORAL
     Route: 048
     Dates: start: 20040916, end: 20041027
  2. NAFTOPIDIL (NAFTOPIDIL) [Concomitant]
  3. AMLODIPINE BESYLATE [Concomitant]
  4. AMBROXOL HYDROCHLORIDE (AMBROXOL HYDROCHLORIDE) [Concomitant]

REACTIONS (2)
  - HEPATIC FUNCTION ABNORMAL [None]
  - HEPATIC NEOPLASM [None]
